FAERS Safety Report 15415199 (Version 1)
Quarter: 2018Q3

REPORT INFORMATION
  Report Type: Spontaneous
  Country: US (occurrence: US)
  Receive Date: 20180921
  Receipt Date: 20180921
  Transmission Date: 20181010
  Serious: No
  Sender: FDA-Public Use
  Company Number: US-009507513-1611USA013708

PATIENT
  Age: 32 Year
  Sex: Female

DRUGS (7)
  1. TENOFOVIR DISOPROXIL FUMARATE. [Suspect]
     Active Substance: TENOFOVIR DISOPROXIL FUMARATE
     Dosage: 500 MG, QD, START FROM GESTATION WEEK 0
     Route: 048
  2. RALTEGRAVIR POTASSIUM [Suspect]
     Active Substance: RALTEGRAVIR POTASSIUM
     Dosage: 800 MG, QD, FROM GESTATION WEEK 14
     Route: 048
  3. ATAZANAVIR. [Suspect]
     Active Substance: ATAZANAVIR SULFATE
     Dosage: 300 MG, QD, FROM GESTATION WEEK 0 TO 8
     Route: 048
  4. RITONAVIR. [Suspect]
     Active Substance: RITONAVIR
     Dosage: 100 MG, QD, FROM GESTATION WEEK 0 TO 8
     Route: 048
  5. EMTRICITABINE [Suspect]
     Active Substance: EMTRICITABINE
  6. RITONAVIR. [Suspect]
     Active Substance: RITONAVIR
     Dosage: 400 MG, QD, FROM GESTATION WEEK 8 TO 14
     Route: 048
  7. DARUNAVIR [Suspect]
     Active Substance: DARUNAVIR
     Dosage: 1200 MG, QD, FROM GESTATION WEEK 8 TO 14
     Route: 048

REACTIONS (1)
  - Maternal exposure during pregnancy [Recovered/Resolved]
